FAERS Safety Report 23026207 (Version 1)
Quarter: 2023Q4

REPORT INFORMATION
  Report Type: Other
  Country: DE (occurrence: DE)
  Receive Date: 20231004
  Receipt Date: 20231004
  Transmission Date: 20240110
  Serious: Yes (Congenital Anomaly, Other)
  Sender: FDA-Public Use
  Company Number: DE-MACLEODS PHARMACEUTICALS US LTD-MAC2023043598

PATIENT

DRUGS (7)
  1. ESCITALOPRAM [Suspect]
     Active Substance: ESCITALOPRAM OXALATE
     Indication: Product used for unknown indication
     Dosage: 15 MILLIGRAM, QD (EXPOSURE DURING 1ST TRIMESTER AT 0-37.3 GESTATIONAL WEEK)
     Route: 064
     Dates: start: 20210709, end: 20220328
  2. ACETAMINOPHEN [Suspect]
     Active Substance: ACETAMINOPHEN
     Indication: Product used for unknown indication
     Dosage: UNK (EXPOSURE DURING 2ND TRIMESTER AT 24-27.1 GESTATIONAL WEEK)
     Route: 064
  3. COMIRNATY (TOZINAMERAN) [Suspect]
     Active Substance: TOZINAMERAN
     Indication: Product used for unknown indication
     Dosage: UNK (PATIENT MOTHERS 3RD VACCINATION, EXPOSURE DURING 2ND TRIMESTER AT 21.6-21.6 GESTATIONAL WEEK)
     Route: 064
     Dates: start: 20211209, end: 20211209
  4. METOCLOPRAMIDE HYDROCHLORIDE [Suspect]
     Active Substance: METOCLOPRAMIDE HYDROCHLORIDE
     Indication: Product used for unknown indication
     Dosage: UNK (EXPOSURE DURING FIRST TRIMESTER, BEFORE GW 5)
     Route: 064
  5. HUMALOG [Suspect]
     Active Substance: INSULIN LISPRO
     Indication: Product used for unknown indication
     Dosage: 4 INTERNATIONAL UNIT, QD (EXPOSURE DURING 2ND TRIMESTER AT 16-32 GESTATIONAL WEEK)
     Route: 064
  6. MISOPROSTOL [Suspect]
     Active Substance: MISOPROSTOL
     Indication: Product used for unknown indication
     Dosage: 50 MICROGRAM, QD (EXPOSURE DURING 3RD TRIMESTER AT INTRAPARTUM)
     Route: 064
  7. DIMENHYDRINATE [Suspect]
     Active Substance: DIMENHYDRINATE
     Indication: Product used for unknown indication
     Dosage: UNK (EXPOSURE DURING 1ST TRIMESTER AT 5-37.3 GESTATIONAL WEEK)
     Route: 064

REACTIONS (4)
  - Agitation neonatal [Recovered/Resolved]
  - Ventricular septal defect [Recovered/Resolved]
  - Atrial septal defect [Recovered/Resolved]
  - Foetal exposure during pregnancy [Unknown]
